FAERS Safety Report 4663686-2 (Version None)
Quarter: 2005Q2

REPORT INFORMATION
  Report Type: 
  Country: None (occurrence: None)
  Receive Date: 20050517
  Receipt Date: 20050401
  Transmission Date: 20051028
  Serious: Yes (Hospitalization)
  Sender: FDA-Public Use
  Company Number: CIO05004199

PATIENT
  Age: 44 Year
  Sex: Male
  Weight: 72.6 kg

DRUGS (1)
  1. DAYQUIL NON-DROWSY SINUS(PARACETAMOL 325 MG, PSEUDOEPHEDRINE HYDROCHLO [Suspect]
     Dosage: 1 LIQCAP, 1 ONLY FOR 1 DAY, ORAL
     Route: 048
     Dates: start: 20050213, end: 20050213

REACTIONS (1)
  - HEART RATE INCREASED [None]
